FAERS Safety Report 4522284-1 (Version None)
Quarter: 2004Q4

REPORT INFORMATION
  Report Type: 
  Country: None (occurrence: None)
  Receive Date: 20041116
  Receipt Date: 20040811
  Transmission Date: 20050328
  Serious: No
  Sender: FDA-Public Use
  Company Number: S04-USA-05586-01

PATIENT
  Age: 84 Year
  Sex: Female

DRUGS (2)
  1. NAMENDA [Suspect]
     Dosage: 5 MG QD PO
     Route: 048
     Dates: start: 20040808, end: 20040809
  2. REMINYL [Concomitant]

REACTIONS (4)
  - ANOREXIA [None]
  - DYSARTHRIA [None]
  - NAUSEA [None]
  - SOMNOLENCE [None]
